FAERS Safety Report 6251843-3 (Version None)
Quarter: 2009Q2

REPORT INFORMATION
  Report Type: 
  Country: None (occurrence: None)
  Receive Date: 20090630
  Receipt Date: 20090629
  Transmission Date: 20091009
  Serious: Yes (Death)
  Sender: FDA-Public Use
  Company Number: BR-B.I. PHARMACEUTICALS,INC./RIDGEFIELD-2009-BR-00672BR

PATIENT
  Sex: Male

DRUGS (3)
  1. SPIRIVA [Suspect]
     Indication: CHRONIC OBSTRUCTIVE PULMONARY DISEASE
     Dosage: NR
     Route: 055
     Dates: start: 20070101
  2. ALENIA [Concomitant]
     Indication: CHRONIC OBSTRUCTIVE PULMONARY DISEASE
     Dosage: NR
  3. INHALED CORTICOSTEROIDS [Concomitant]
     Indication: CHRONIC OBSTRUCTIVE PULMONARY DISEASE
     Dosage: NR

REACTIONS (5)
  - ANAEMIA [None]
  - CARDIAC FAILURE [None]
  - MELAENA [None]
  - RESPIRATORY FAILURE [None]
  - URINARY TRACT INFECTION [None]
